FAERS Safety Report 9732919 (Version 1)
Quarter: 2013Q4

REPORT INFORMATION
  Report Type: Spontaneous
  Country: DE (occurrence: DE)
  Receive Date: 20131204
  Receipt Date: 20131204
  Transmission Date: 20140711
  Serious: Yes (Other)
  Sender: FDA-Public Use
  Company Number: DE-NAPPMUNDI-DEU-2013-0013048

PATIENT
  Sex: Female

DRUGS (8)
  1. NORSPAN 5 UG/H [Suspect]
     Indication: PAIN
  2. NORSPAN 5 UG/H [Suspect]
     Indication: FIBROMYALGIA
  3. BISOPROLOL [Concomitant]
  4. PANTOPRAZOL [Concomitant]
  5. AMINEURIN [Concomitant]
  6. CABERGOLINE [Concomitant]
  7. INSULIN [Concomitant]
  8. SPASMAX [Concomitant]

REACTIONS (10)
  - Impaired driving ability [Unknown]
  - Nausea [Unknown]
  - Vomiting [Unknown]
  - Dizziness [Unknown]
  - Somnolence [Unknown]
  - Fatigue [Unknown]
  - Restless legs syndrome [Unknown]
  - Drug withdrawal syndrome [Unknown]
  - Mental impairment [Unknown]
  - Drug intolerance [Unknown]
